FAERS Safety Report 9579562 (Version 2)
Quarter: 2013Q4

REPORT INFORMATION
  Report Type: Spontaneous
  Country: US (occurrence: US)
  Receive Date: 20131001
  Receipt Date: 20131001
  Transmission Date: 20140711
  Serious: No
  Sender: FDA-Public Use
  Company Number: US-AMGEN-USASP2012083438

PATIENT
  Age: 44 Year
  Sex: Female
  Weight: 111.1 kg

DRUGS (10)
  1. ENBREL [Suspect]
     Indication: RHEUMATOID ARTHRITIS
     Dosage: 50 MG, QWK
     Route: 058
     Dates: start: 20100414, end: 201211
  2. METHOTREXATE [Concomitant]
     Dosage: 2.5 MG, UNK
  3. ALTACE [Concomitant]
     Dosage: 1.25 MG, UNK
  4. METFORMIN [Concomitant]
     Dosage: 850 MG, UNK
  5. LIPITOR [Concomitant]
     Dosage: 10 MG, UNK
  6. ACTOS [Concomitant]
     Dosage: 15 MG, UNK
  7. VITAMIN D3 [Concomitant]
     Dosage: 1000 UNIT, UNK
  8. FOLIC ACID [Concomitant]
     Dosage: UNK
  9. MULTIVITAMINS, PLAIN [Concomitant]
     Dosage: UNK
  10. HUMALOG [Concomitant]
     Dosage: 100 /ML, UNK

REACTIONS (3)
  - Pain [Not Recovered/Not Resolved]
  - Musculoskeletal stiffness [Not Recovered/Not Resolved]
  - Therapeutic response decreased [Unknown]
